FAERS Safety Report 4604663-7 (Version None)
Quarter: 2005Q1

REPORT INFORMATION
  Report Type: 
  Country: None (occurrence: None)
  Receive Date: 20050310
  Receipt Date: 20050228
  Transmission Date: 20050727
  Serious: Yes (Death)
  Sender: FDA-Public Use
  Company Number: AU-MERCK-0503AUS00020

PATIENT
  Age: 40 Year
  Sex: Male

DRUGS (5)
  1. CANCIDAS [Suspect]
     Indication: CEREBRAL ASPERGILLOSIS
     Route: 042
     Dates: start: 20030801
  2. AMPHOTERICIN B AND CHOLESTEROL AND DISTEAROYLPHOSPHATIDYLGLYCEROL AND [Concomitant]
     Indication: ASPERGILLOSIS
     Route: 065
     Dates: start: 20030801
  3. [THERAPY UNSPECIFIED] [Concomitant]
     Indication: ASPERGILLOSIS
     Route: 065
     Dates: start: 20030801
  4. GRANULOCYTE-MACROPHAGE COLONY STIMULATING FACTOR (UNSPECIFIED) [Concomitant]
     Indication: ASPERGILLOSIS
     Route: 065
     Dates: start: 20030801
  5. VORICONAZOLE [Concomitant]
     Indication: ASPERGILLOSIS
     Route: 065

REACTIONS (2)
  - DEATH [None]
  - GENERAL PHYSICAL HEALTH DETERIORATION [None]
